FAERS Safety Report 5256139-4 (Version None)
Quarter: 2007Q1

REPORT INFORMATION
  Report Type: 
  Country: None (occurrence: None)
  Receive Date: 20070301
  Receipt Date: 20070221
  Transmission Date: 20070707
  Serious: Yes (Hospitalization)
  Sender: FDA-Public Use
  Company Number: 2007BI001945

PATIENT
  Age: 52 Year
  Sex: Female

DRUGS (7)
  1. NATALIZUMAB [Suspect]
     Indication: MULTIPLE SCLEROSIS
     Dosage: 300 MG; QM; IV
     Route: 042
     Dates: start: 20060929, end: 20061128
  2. FOSAMAX [Concomitant]
  3. ZONEGRAN [Concomitant]
  4. SEROQUEL [Concomitant]
  5. AMBIEN [Concomitant]
  6. SPIRONOLACTONE [Concomitant]
  7. LEXAPRO [Concomitant]

REACTIONS (5)
  - CONDITION AGGRAVATED [None]
  - CONFUSIONAL STATE [None]
  - CONVULSION [None]
  - INFUSION RELATED REACTION [None]
  - PROGRESSIVE MULTIPLE SCLEROSIS [None]
